FAERS Safety Report 20627488 (Version 1)
Quarter: 2022Q1

REPORT INFORMATION
  Report Type: Spontaneous
  Country: FR (occurrence: None)
  Receive Date: 20220323
  Receipt Date: 20220323
  Transmission Date: 20220423
  Serious: Yes (Life-Threatening)
  Sender: FDA-Public Use
  Company Number: None

PATIENT
  Age: 51 Year
  Sex: Female
  Weight: 74 kg

DRUGS (6)
  1. PROPOFOL [Suspect]
     Active Substance: PROPOFOL
     Indication: Anaesthesia
     Route: 042
     Dates: start: 20220222, end: 20220222
  2. PATENT BLUE V [Suspect]
     Active Substance: PATENT BLUE V
     Indication: Lymphadenectomy
     Route: 058
     Dates: start: 20220222, end: 20220222
  3. LIDOCAINE [Suspect]
     Active Substance: LIDOCAINE
     Indication: Anaesthesia
     Route: 042
     Dates: start: 20220222, end: 20220222
  4. SUFENTANIL CITRATE [Suspect]
     Active Substance: SUFENTANIL CITRATE
     Indication: Anaesthesia
     Route: 042
     Dates: start: 20220222, end: 20220222
  5. KETOPROFEN [Suspect]
     Active Substance: KETOPROFEN
     Indication: Anaesthesia
     Route: 042
     Dates: start: 20220222, end: 20220222
  6. KETAMINE [Suspect]
     Active Substance: KETAMINE
     Indication: Anaesthesia
     Route: 042
     Dates: start: 20220222, end: 20220222

REACTIONS (1)
  - Anaphylactic shock [Recovered/Resolved]

NARRATIVE: CASE EVENT DATE: 20220222
